FAERS Safety Report 19754608 (Version 1)
Quarter: 2021Q3

REPORT INFORMATION
  Report Type: Spontaneous
  Country: CH (occurrence: CH)
  Receive Date: 20210827
  Receipt Date: 20210827
  Transmission Date: 20211014
  Serious: Yes (Other)
  Sender: FDA-Public Use
  Company Number: CH-SUN PHARMACEUTICAL INDUSTRIES LTD-2021RR-309477

PATIENT
  Age: 69 Year
  Sex: Male

DRUGS (5)
  1. DOCETAXEL. [Suspect]
     Active Substance: DOCETAXEL
     Indication: ANAL SQUAMOUS CELL CARCINOMA
     Dosage: 75 MILLIGRAM/SQ. METER, 2 CYCLES, EVERY 3 WEEKS
     Route: 065
  2. CETUXIMAB. [Suspect]
     Active Substance: CETUXIMAB
     Indication: ANAL SQUAMOUS CELL CARCINOMA
     Dosage: 400 MILLIGRAM/SQ. METER
     Route: 065
  3. IRINOTECAN [Suspect]
     Active Substance: IRINOTECAN
     Indication: ANAL SQUAMOUS CELL CARCINOMA
     Dosage: 180 MILLIGRAM/SQ. METER, EVERY 2 WEEKS
     Route: 065
  4. CARBOPLATIN. [Suspect]
     Active Substance: CARBOPLATIN
     Indication: ANAL SQUAMOUS CELL CARCINOMA
     Dosage: AUC 5, 2 CYCLES EVERY 3 WEEKS
     Route: 065
  5. CETUXIMAB. [Suspect]
     Active Substance: CETUXIMAB
     Dosage: 250 MILLIGRAM/SQ. METER
     Route: 065

REACTIONS (2)
  - Disease progression [Unknown]
  - Rash [Unknown]
